FAERS Safety Report 7988911-1 (Version None)
Quarter: 2011Q4

REPORT INFORMATION
  Report Type: 
  Country: None (occurrence: None)
  Receive Date: 20111219
  Receipt Date: 20111206
  Transmission Date: 20120403
  Serious: Yes (Hospitalization, Other)
  Sender: FDA-Public Use
  Company Number: US-RANBAXY-2011RR-51074

PATIENT
  Sex: Female

DRUGS (5)
  1. ACETAMINOPHEN [Concomitant]
     Indication: PAIN
     Dosage: UNK
     Route: 065
     Dates: start: 20100801
  2. LEVAQUIN [Suspect]
     Indication: BRONCHITIS
     Dosage: 750 MG, QD
     Route: 048
     Dates: start: 20090401
  3. CIPROFLOXACIN [Suspect]
     Indication: BRONCHITIS
     Dosage: UNK
     Route: 048
     Dates: start: 20100430
  4. LEVAQUIN [Suspect]
     Dosage: VARYING DOSES OF 250 TO 500 MG
     Route: 065
     Dates: start: 20080523, end: 20080527
  5. ZOCOR [Concomitant]
     Indication: BLOOD CHOLESTEROL
     Dosage: UNK
     Route: 065
     Dates: start: 20040101

REACTIONS (4)
  - RESPIRATORY ARREST [None]
  - ROTATOR CUFF SYNDROME [None]
  - BIPOLAR I DISORDER [None]
  - TENDON RUPTURE [None]
